FAERS Safety Report 8370139-7 (Version None)
Quarter: 2012Q2

REPORT INFORMATION
  Report Type: 
  Country: None (occurrence: None)
  Receive Date: 20120518
  Receipt Date: 20120515
  Transmission Date: 20120825
  Serious: No
  Sender: FDA-Public Use
  Company Number: US-PFIZER INC-2012097770

PATIENT
  Sex: Female

DRUGS (10)
  1. NEURONTIN [Suspect]
     Indication: RADICULOPATHY
  2. VITAMIN B6 [Concomitant]
     Dosage: UNK
  3. NEURONTIN [Suspect]
     Indication: INTERVERTEBRAL DISC DEGENERATION
  4. ALLEGRA [Concomitant]
     Dosage: UNK
  5. NEURONTIN [Suspect]
     Indication: PAIN
  6. NEURONTIN [Suspect]
  7. NAPROXEN [Concomitant]
     Dosage: 500 MG, UNK
  8. VITAMIN D [Concomitant]
     Dosage: UNK
  9. NEURONTIN [Suspect]
     Indication: BACK INJURY
     Dosage: 300 MG, 3X/DAY (1 DOSAGE FORM)
     Route: 048
     Dates: start: 20110516, end: 20110523
  10. VITAMIN B-12 [Concomitant]
     Dosage: UNK

REACTIONS (4)
  - RASH [None]
  - DIARRHOEA [None]
  - FLATULENCE [None]
  - DIZZINESS [None]
